FAERS Safety Report 4478552-5 (Version None)
Quarter: 2004Q4

REPORT INFORMATION
  Report Type: 
  Country: None (occurrence: None)
  Receive Date: 20041019
  Receipt Date: 20041008
  Transmission Date: 20050328
  Serious: Yes (Hospitalization)
  Sender: FDA-Public Use
  Company Number: FR-JNJFOC-20041002864

PATIENT
  Age: 83 Year
  Sex: Male

DRUGS (6)
  1. RISPERDAL [Suspect]
     Indication: DRUG USE FOR UNKNOWN INDICATION
     Route: 049
  2. TOPALGIC [Suspect]
     Route: 049
  3. TOPALGIC [Suspect]
     Indication: PAIN
     Route: 049
  4. TEGRETOL [Suspect]
     Indication: DRUG USE FOR UNKNOWN INDICATION
     Route: 049
  5. FONZYLANE [Suspect]
     Indication: DRUG USE FOR UNKNOWN INDICATION
     Route: 049
  6. COZAAR [Suspect]
     Indication: DRUG USE FOR UNKNOWN INDICATION
     Route: 049

REACTIONS (8)
  - ARTERITIS [None]
  - BLOOD PRESSURE ORTHOSTATIC INCREASED [None]
  - DISORIENTATION [None]
  - LOCALISED INFECTION [None]
  - ORTHOSTATIC HYPOTENSION [None]
  - PAIN [None]
  - SEPSIS [None]
  - SYNCOPE VASOVAGAL [None]
